FAERS Safety Report 18502546 (Version 2)
Quarter: 2020Q4

REPORT INFORMATION
  Report Type: Spontaneous
  Country: DE (occurrence: DE)
  Receive Date: 20201113
  Receipt Date: 20201118
  Transmission Date: 20210114
  Serious: Yes (Other)
  Sender: FDA-Public Use
  Company Number: DE-BIOMARINAP-DE-2020-133297

PATIENT
  Age: 44 Year
  Sex: Male
  Weight: 62.1 kg

DRUGS (1)
  1. NAGLAZYME [Suspect]
     Active Substance: GALSULFASE
     Indication: MUCOPOLYSACCHARIDOSIS VI
     Dosage: 60 MILLIGRAM, QW
     Route: 042
     Dates: start: 201607

REACTIONS (2)
  - Corneal transplant [Recovered/Resolved]
  - Bacterial disease carrier [Recovered/Resolved]
